FAERS Safety Report 17431800 (Version 2)
Quarter: 2020Q1

REPORT INFORMATION
  Report Type: Spontaneous
  Country: CH (occurrence: CH)
  Receive Date: 20200218
  Receipt Date: 20200220
  Transmission Date: 20200409
  Serious: Yes (Hospitalization, Other)
  Sender: FDA-Public Use
  Company Number: CH-MYLANLABS-2020M1018572

PATIENT
  Age: 80 Year
  Sex: Female
  Weight: 65.4 kg

DRUGS (14)
  1. SIMCORA [Interacting]
     Active Substance: SIMVASTATIN
     Indication: HYPERCHOLESTEROLAEMIA
     Dosage: 40 MILLIGRAM, QD
     Route: 048
     Dates: start: 2013, end: 20200105
  2. MONURIL [Concomitant]
     Active Substance: FOSFOMYCIN TROMETHAMINE
     Dosage: UNK
  3. LATANOPROST. [Concomitant]
     Active Substance: LATANOPROST
  4. VITAMIN D3 [Concomitant]
     Active Substance: CHOLECALCIFEROL
  5. ASPIRIN CARDIO [Concomitant]
     Active Substance: ASPIRIN
     Dosage: UNK
  6. ISOPTIN [Suspect]
     Active Substance: VERAPAMIL HYDROCHLORIDE
     Indication: PRODUCT USED FOR UNKNOWN INDICATION
     Dosage: 120 MILLIGRAM, QD
     Route: 048
     Dates: start: 2013
  7. OLMESARTAN MEDOXOMIL AND HYDROCHLOROTHIAZIDE [Concomitant]
     Active Substance: HYDROCHLOROTHIAZIDE\OLMESARTAN MEDOXOMIL
  8. FASLODEX [Concomitant]
     Active Substance: FULVESTRANT
  9. KISQALI [Interacting]
     Active Substance: RIBOCICLIB
     Dosage: UNK
     Dates: start: 20200103
  10. HARPAGOMED [Concomitant]
     Dosage: UNK
  11. KISQALI [Interacting]
     Active Substance: RIBOCICLIB
     Indication: BREAST CANCER METASTATIC
     Dosage: 600 MILLIGRAM, QD CYCLE (21 DAYS, THEN 7 DAYS BREAK)
     Route: 048
     Dates: start: 20191213
  12. RELAXANE [Concomitant]
  13. CALCIMAGON D3 [Concomitant]
     Active Substance: CALCIUM\CHOLECALCIFEROL
     Dosage: UNK
  14. DUSPATALIN                         /00139402/ [Concomitant]
     Active Substance: MEBEVERINE HYDROCHLORIDE
     Dosage: UNK

REACTIONS (2)
  - Rhabdomyolysis [Recovering/Resolving]
  - Drug interaction [Recovering/Resolving]

NARRATIVE: CASE EVENT DATE: 20200104
